FAERS Safety Report 25350116 (Version 1)
Quarter: 2025Q2

REPORT INFORMATION
  Report Type: Spontaneous
  Country: CN (occurrence: CN)
  Receive Date: 20250523
  Receipt Date: 20250523
  Transmission Date: 20250716
  Serious: Yes (Hospitalization, Other)
  Sender: RANBAXY
  Company Number: CN-SUN PHARMACEUTICAL INDUSTRIES LTD-2025R1-508202

PATIENT
  Age: 54 Year
  Sex: Female
  Weight: 67 kg

DRUGS (5)
  1. METOPROLOL [Suspect]
     Active Substance: METOPROLOL
     Indication: Hypertension
     Dosage: 11.875 MILLIGRAM, QD
     Route: 048
  2. POTASSIUM CHLORIDE [Suspect]
     Active Substance: POTASSIUM CHLORIDE
     Indication: Hypertension
     Dosage: 1 GRAM, BID
     Route: 048
  3. SPIRONOLACTONE [Suspect]
     Active Substance: SPIRONOLACTONE
     Indication: Hypertension
     Dosage: 20 MILLIGRAM, QD
     Route: 048
  4. VALSARTAN [Suspect]
     Active Substance: VALSARTAN
     Indication: Arrhythmia
     Dosage: 50 MILLIGRAM, BID
     Route: 048
  5. SACUBITRIL [Suspect]
     Active Substance: SACUBITRIL
     Indication: Hypertension
     Route: 048

REACTIONS (1)
  - Peripheral ischaemia [Unknown]
